FAERS Safety Report 24627191 (Version 1)
Quarter: 2024Q4

REPORT INFORMATION
  Report Type: Spontaneous
  Country: US (occurrence: US)
  Receive Date: 20241116
  Receipt Date: 20241116
  Transmission Date: 20250115
  Serious: Yes (Hospitalization)
  Sender: SANOFI AVENTIS
  Company Number: US-SA-2024SA332283

PATIENT
  Age: 67 Year
  Sex: Female

DRUGS (1)
  1. DUPIXENT [Suspect]
     Active Substance: DUPILUMAB
     Indication: Chronic rhinosinusitis with nasal polyps
     Dosage: 300 MG, QOW
     Route: 058
     Dates: end: 20241107

REACTIONS (5)
  - Injection site rash [Unknown]
  - Serum sickness [Unknown]
  - Rash papular [Unknown]
  - Rash pruritic [Unknown]
  - Pyrexia [Unknown]

NARRATIVE: CASE EVENT DATE: 20241031
